FAERS Safety Report 5650310-5 (Version None)
Quarter: 2008Q1

REPORT INFORMATION
  Report Type: 
  Country: None (occurrence: None)
  Receive Date: 20080303
  Receipt Date: 20080303
  Transmission Date: 20080703
  Serious: Yes (Hospitalization)
  Sender: FDA-Public Use
  Company Number: None

PATIENT
  Sex: Female
  Weight: 72.5755 kg

DRUGS (2)
  1. AVELOX [Suspect]
     Indication: COUGH
     Dosage: 400MG QD PO
     Route: 048
     Dates: start: 20080301, end: 20080302
  2. AVELOX [Suspect]
     Indication: SINUSITIS
     Dosage: 400MG QD PO
     Route: 048
     Dates: start: 20080301, end: 20080302

REACTIONS (3)
  - CYANOSIS [None]
  - DYSPEPSIA [None]
  - LOSS OF CONSCIOUSNESS [None]
